FAERS Safety Report 9423693 (Version 1)
Quarter: 2013Q3

REPORT INFORMATION
  Report Type: Spontaneous
  Country: US (occurrence: US)
  Receive Date: 20130727
  Receipt Date: 20130727
  Transmission Date: 20140515
  Serious: Yes (Hospitalization, Other)
  Sender: FDA-Public Use
  Company Number: PHEH2013US015649

PATIENT
  Sex: Female

DRUGS (4)
  1. DIOVAN [Suspect]
     Dosage: UNK UKN, UNK
  2. ATENOLOL [Suspect]
     Dosage: UNK UKN, UNK
  3. AZOR /06230801/ [Suspect]
     Dosage: 1 DF(5/20MG), QD
     Dates: start: 201301
  4. BENICAR [Suspect]
     Dosage: UNK UKN, UNK

REACTIONS (12)
  - Burns third degree [Unknown]
  - Blood pressure fluctuation [Unknown]
  - Blindness [Unknown]
  - Pain [Unknown]
  - Dyspnoea [Unknown]
  - Urticaria [Unknown]
  - Oropharyngeal discomfort [Unknown]
  - Dehydration [Unknown]
  - Feeling abnormal [Unknown]
  - Hypersensitivity [Unknown]
  - Insomnia [Unknown]
  - Headache [Unknown]
